FAERS Safety Report 5120576-9 (Version None)
Quarter: 2006Q4

REPORT INFORMATION
  Report Type: 
  Country: None (occurrence: None)
  Receive Date: 20061002
  Receipt Date: 20060915
  Transmission Date: 20070319
  Serious: Yes (Hospitalization)
  Sender: FDA-Public Use
  Company Number: DK200603006033

PATIENT
  Age: 82 Year
  Sex: Female
  Weight: 49 kg

DRUGS (4)
  1. FORTEO [Suspect]
     Indication: OSTEOPOROSIS
     Dosage: 20  UG, DAILY (1/D), SUBCUTANEOUS
     Route: 058
     Dates: start: 20051001
  2. FORTEO PEN (FORTEO PEN) PEN, DISPOSABLE [Concomitant]
  3. WARFARIN SODIUM [Concomitant]
  4. ATACAND [Concomitant]

REACTIONS (1)
  - FEMUR FRACTURE [None]
